FAERS Safety Report 10984122 (Version 1)
Quarter: 2015Q2

REPORT INFORMATION
  Report Type: Spontaneous
  Country: IL (occurrence: None)
  Receive Date: 20150401
  Receipt Date: 20150401
  Transmission Date: 20150821
  Serious: Yes (Hospitalization)
  Sender: FDA-Public Use
  Company Number: 2015HAR00004

PATIENT
  Age: 34 Year
  Sex: Male

DRUGS (4)
  1. ESCITALOPRAM [Concomitant]
     Active Substance: ESCITALOPRAM OXALATE
  2. OLANZAPINE (OLANZAPINE) [Concomitant]
     Active Substance: OLANZAPINE
  3. SIMVASTATIN (SIMVASTATIN) [Concomitant]
     Active Substance: SIMVASTATIN
  4. TERBINAFINE (TERBINAFINE) UNKNOWN [Suspect]
     Active Substance: TERBINAFINE
     Indication: ONYCHOMYCOSIS

REACTIONS (6)
  - Abdominal pain [None]
  - Toxicity to various agents [None]
  - Thrombotic thrombocytopenic purpura [None]
  - Anaemia [None]
  - Pyrexia [None]
  - Asthenia [None]
